FAERS Safety Report 16210533 (Version 1)
Quarter: 2019Q2

REPORT INFORMATION
  Report Type: Spontaneous
  Country: US (occurrence: US)
  Receive Date: 20190418
  Receipt Date: 20190418
  Transmission Date: 20190711
  Serious: Yes (Other)
  Sender: FDA-Public Use
  Company Number: US-TEVA-2018-US-913792

PATIENT
  Age: 79 Year
  Sex: Male

DRUGS (3)
  1. CALCIUM ACETATE. [Concomitant]
     Active Substance: CALCIUM ACETATE
     Route: 065
  2. WARFARIN [Suspect]
     Active Substance: WARFARIN
     Indication: ANTICOAGULANT THERAPY
     Route: 048
  3. PARICALCITOL. [Concomitant]
     Active Substance: PARICALCITOL
     Route: 042

REACTIONS (1)
  - Calciphylaxis [Recovered/Resolved]
